FAERS Safety Report 5571574-2 (Version None)
Quarter: 2007Q4

REPORT INFORMATION
  Report Type: 
  Country: None (occurrence: None)
  Receive Date: 20071221
  Receipt Date: 20071219
  Transmission Date: 20080405
  Serious: Yes (Other)
  Sender: FDA-Public Use
  Company Number: US-ELI_LILLY_AND_COMPANY-US200712004059

PATIENT
  Age: 55 Year
  Sex: Female

DRUGS (2)
  1. HUMALOG MIX 75/25 [Suspect]
     Indication: DIABETES MELLITUS
     Dosage: 43 U, EACH MORNING
     Dates: end: 20071219
  2. HUMALOG MIX 75/25 [Suspect]
     Dosage: 40 U, EACH EVENING

REACTIONS (2)
  - BLOOD GLUCOSE FLUCTUATION [None]
  - DEAFNESS [None]
